FAERS Safety Report 15039653 (Version 2)
Quarter: 2018Q2

REPORT INFORMATION
  Report Type: Spontaneous
  Country: US (occurrence: US)
  Receive Date: 20180620
  Receipt Date: 20180627
  Transmission Date: 20180711
  Serious: Yes (Hospitalization)
  Sender: FDA-Public Use
  Company Number: US-MISSION PHARMACAL COMPANY-2049735

PATIENT
  Age: 63 Year
  Sex: Male

DRUGS (1)
  1. THIOLA [Suspect]
     Active Substance: TIOPRONIN
     Indication: CYSTINURIA
     Route: 048
     Dates: start: 20170322

REACTIONS (5)
  - Dehydration [Unknown]
  - Drug ineffective [Unknown]
  - Urinary tract infection [Unknown]
  - Drug dose omission [Unknown]
  - Sepsis [Unknown]
